FAERS Safety Report 6965726-4 (Version None)
Quarter: 2010Q3

REPORT INFORMATION
  Report Type: 
  Country: None (occurrence: None)
  Receive Date: 20100903
  Receipt Date: 20100826
  Transmission Date: 20110219
  Serious: Yes (Other)
  Sender: FDA-Public Use
  Company Number: GB-ROCHE-724406

PATIENT
  Age: 20 Year
  Sex: Male

DRUGS (5)
  1. ISOTRETINOIN [Suspect]
     Indication: ACNE
     Dosage: DRUG WITHDRAWN
     Route: 048
     Dates: start: 20100629
  2. BACLOFEN [Concomitant]
  3. OXYBUTYNIN [Concomitant]
  4. SENOKOT [Concomitant]
  5. ALBUTEROL SULFATE AUTOHALER [Concomitant]

REACTIONS (1)
  - RETINAL DETACHMENT [None]
